FAERS Safety Report 21452097 (Version 1)
Quarter: 2022Q4

REPORT INFORMATION
  Report Type: Spontaneous
  Country: US (occurrence: US)
  Receive Date: 20221013
  Receipt Date: 20221013
  Transmission Date: 20230112
  Serious: Yes (Hospitalization, Other)
  Sender: FDA-Public Use
  Company Number: US-INSUD PHARMA-2210US04066

PATIENT

DRUGS (1)
  1. ISIBLOOM [Suspect]
     Active Substance: DESOGESTREL\ETHINYL ESTRADIOL
     Indication: Product used for unknown indication
     Dosage: UNK
     Route: 048

REACTIONS (34)
  - Antiphospholipid syndrome [Recovered/Resolved with Sequelae]
  - Thrombocytopenia [Unknown]
  - Pulmonary embolism [Unknown]
  - Dyspnoea [Unknown]
  - Pleuritic pain [Unknown]
  - Arthralgia [Unknown]
  - Neck pain [Unknown]
  - Pericardial effusion [Unknown]
  - Subclavian vein thrombosis [Unknown]
  - Axillary vein thrombosis [Unknown]
  - Hypotension [Unknown]
  - Tachycardia [Unknown]
  - Tachypnoea [Unknown]
  - Hypoxia [Unknown]
  - Cerebral infarction [Unknown]
  - Brain oedema [Unknown]
  - Acute kidney injury [Unknown]
  - Acute respiratory failure [Unknown]
  - Disseminated intravascular coagulation [Unknown]
  - Gangrene [Unknown]
  - Extremity necrosis [Unknown]
  - Deep vein thrombosis [Unknown]
  - Epidermal necrosis [Unknown]
  - Skin necrosis [Unknown]
  - Thrombosis [Unknown]
  - Ischaemic skin ulcer [Unknown]
  - Skin lesion [Unknown]
  - Dermatitis bullous [Unknown]
  - Fatigue [Unknown]
  - Asthenia [Unknown]
  - Nausea [Unknown]
  - Chills [Unknown]
  - Night sweats [Unknown]
  - Lymphadenopathy [Unknown]
